FAERS Safety Report 19558083 (Version 1)
Quarter: 2021Q3

REPORT INFORMATION
  Report Type: Spontaneous
  Country: CY (occurrence: CY)
  Receive Date: 20210714
  Receipt Date: 20210714
  Transmission Date: 20211014
  Serious: Yes (Other)
  Sender: FDA-Public Use
  Company Number: CY-SAMSUNG BIOEPIS-SB-2021-16930

PATIENT
  Age: 33 Year
  Sex: Female

DRUGS (1)
  1. BENEPALI [Suspect]
     Active Substance: ETANERCEPT
     Indication: ANKYLOSING SPONDYLITIS
     Route: 058
     Dates: start: 2018

REACTIONS (2)
  - Impaired healing [Not Recovered/Not Resolved]
  - Spinal fracture [Not Recovered/Not Resolved]
